FAERS Safety Report 8946947 (Version 1)
Quarter: 2012Q4

REPORT INFORMATION
  Report Type: 
  Country: NZ (occurrence: NZ)
  Receive Date: 20121205
  Receipt Date: 20121205
  Transmission Date: 20130627
  Serious: Yes (Other)
  Sender: FDA-Public Use
  Company Number: NZ-PFIZER INC-2012265855

PATIENT
  Age: 68 Year
  Sex: Male
  Weight: 132 kg

DRUGS (2)
  1. ZARATOR [Suspect]
     Indication: LIPIDS INCREASED
     Dosage: 10 mg, UNK
     Route: 048
     Dates: start: 20121018, end: 20121025
  2. NORVASC [Concomitant]
     Indication: HYPERTENSION
     Dosage: 15 mg, 1x/day
     Route: 048
     Dates: start: 20121017

REACTIONS (2)
  - Rash papular [Recovered/Resolved]
  - Vomiting [Recovered/Resolved]
